FAERS Safety Report 18239852 (Version 1)
Quarter: 2020Q3

REPORT INFORMATION
  Report Type: Spontaneous
  Country: ES (occurrence: ES)
  Receive Date: 20200908
  Receipt Date: 20200908
  Transmission Date: 20201103
  Serious: Yes (Hospitalization)
  Sender: FDA-Public Use
  Company Number: ES-CADILA HEALTHCARE LIMITED-ES-ZYDUS-028105

PATIENT

DRUGS (16)
  1. PARICALCITOL. [Concomitant]
     Active Substance: PARICALCITOL
     Dosage: 1 MICROGRAM,(INTERVAL :1 DAYS)
     Route: 048
  2. PARACETAMOL [Concomitant]
     Active Substance: ACETAMINOPHEN
     Dosage: 650 MILLIGRAM,(INTERVAL :8 HOURS)
     Route: 048
  3. SYMBICORT [Concomitant]
     Active Substance: BUDESONIDE\FORMOTEROL FUMARATE DIHYDRATE
     Dosage: 1 DOSAGE FORM,(INTERVAL :12 HOURS)
     Route: 055
  4. EZETROL [Concomitant]
     Active Substance: EZETIMIBE
     Dosage: 10 MILLIGRAM,(INTERVAL :1 DAYS)
     Route: 048
  5. CARVEDILOL. [Suspect]
     Active Substance: CARVEDILOL
     Indication: PRODUCT USED FOR UNKNOWN INDICATION
     Dosage: 3.12 MILLIGRAM,(INTERVAL :12 HOURS)
     Route: 048
     Dates: start: 2014, end: 20180415
  6. TERBASMIN TURBUHALER [Concomitant]
     Active Substance: TERBUTALINE SULFATE
     Dosage: .5 MILLIGRAM,(INTERVAL :6 HOURS)
     Route: 055
  7. FEBUXOSTAT. [Concomitant]
     Active Substance: FEBUXOSTAT
     Dosage: 80 MILLIGRAM,(INTERVAL :1 DAYS)
     Route: 048
  8. GEMFIBROZILO [Concomitant]
     Active Substance: GEMFIBROZIL
     Dosage: 900 MILLIGRAM,(INTERVAL :1 DAYS)
     Route: 048
  9. FUROSEMIDA [Concomitant]
     Active Substance: FUROSEMIDE
     Dosage: 40 MILLIGRAM,(INTERVAL :1 DAYS)
     Route: 048
  10. RAMIPRIL. [Concomitant]
     Active Substance: RAMIPRIL
     Dosage: 2.5 MILLIGRAM,(INTERVAL :1 DAYS)
     Route: 048
  11. SINTROM [Concomitant]
     Active Substance: ACENOCOUMAROL
  12. DIGOXIN. [Suspect]
     Active Substance: DIGOXIN
     Indication: ATRIAL FIBRILLATION
     Dosage: .25 MILLIGRAM,(INTERVAL :48 DAYS)
     Route: 048
     Dates: start: 2014, end: 20180415
  13. ATORVASTATINA [Concomitant]
     Active Substance: ATORVASTATIN
     Dosage: 40 MILLIGRAM,(INTERVAL :1 DAYS)
     Route: 048
  14. ALFUZOSIN [Concomitant]
     Active Substance: ALFUZOSIN
     Dosage: 10 MILLIGRAM,(INTERVAL :1 DAYS)
     Route: 048
  15. OMEPRAZOL [Concomitant]
     Active Substance: OMEPRAZOLE
     Dosage: 20 MILLIGRAM,(INTERVAL :1 DAYS)
     Route: 048
  16. LEFLUNOMIDE. [Concomitant]
     Active Substance: LEFLUNOMIDE
     Dosage: 10 MILLIGRAM,(INTERVAL :1 DAYS)
     Route: 048

REACTIONS (2)
  - Toxicity to various agents [Recovered/Resolved]
  - Bradycardia [Recovered/Resolved]

NARRATIVE: CASE EVENT DATE: 20180415
